FAERS Safety Report 5032835-9 (Version None)
Quarter: 2006Q2

REPORT INFORMATION
  Report Type: 
  Country: None (occurrence: None)
  Receive Date: 20060620
  Receipt Date: 20060609
  Transmission Date: 20061013
  Serious: Yes (Hospitalization, Other)
  Sender: FDA-Public Use
  Company Number: 226166

PATIENT
  Age: 15 Year
  Sex: Female
  Weight: 49.1 kg

DRUGS (4)
  1. NUTROPIN AQ [Suspect]
     Indication: BODY HEIGHT BELOW NORMAL
     Dosage: 2.6 MG, 6/WEEK,
     Dates: start: 20050103
  2. CONCERTA [Concomitant]
  3. HUMALOG [Concomitant]
  4. LANTUS [Concomitant]

REACTIONS (3)
  - BLOOD BICARBONATE DECREASED [None]
  - DIABETES MELLITUS INSULIN-DEPENDENT [None]
  - WEIGHT DECREASED [None]
